FAERS Safety Report 10439930 (Version 4)
Quarter: 2014Q4

REPORT INFORMATION
  Report Type: Spontaneous
  Country: TW (occurrence: None)
  Receive Date: 20140905
  Receipt Date: 20141015
  Transmission Date: 20150528
  Serious: Yes (Death, Hospitalization, Other)
  Sender: FDA-Public Use
  Company Number: UNT-2014-006442

PATIENT
  Age: 66 Year
  Sex: Female
  Weight: 47 kg

DRUGS (2)
  1. VENTAVIE (ILOPROST) [Concomitant]
     Active Substance: ILOPROST
  2. REMODULIN [Suspect]
     Active Substance: TREPROSTINIL
     Indication: PULMONARY ARTERIAL HYPERTENSION
     Dosage: 0.030 ?G/KG, CONTINUING AT PUMP RATE 1.4 U/HR, SUBCUTANEOUS
     Route: 058
     Dates: start: 20140811

REACTIONS (7)
  - Right ventricular failure [None]
  - Pancreatitis [None]
  - Acute kidney injury [None]
  - Generalised oedema [None]
  - Oliguria [None]
  - Dyspnoea [None]
  - Hypotension [None]

NARRATIVE: CASE EVENT DATE: 2014
